FAERS Safety Report 8895324 (Version 2)
Quarter: 2012Q4

REPORT INFORMATION
  Report Type: 
  Country: DK (occurrence: GB)
  Receive Date: 20121107
  Receipt Date: 20121119
  Transmission Date: 20130627
  Serious: Yes (Hospitalization, Other)
  Sender: FDA-Public Use
  Company Number: GB-FRI-1000039417

PATIENT

DRUGS (1)
  1. DINOPROSTONE [Suspect]
     Indication: LABOUR INDUCTION
     Dosage: 10 mg
     Route: 064
     Dates: start: 20120920

REACTIONS (2)
  - Bradycardia foetal [Recovered/Resolved]
  - Neonatal disorder [Unknown]
